FAERS Safety Report 4932179-7 (Version None)
Quarter: 2006Q1

REPORT INFORMATION
  Report Type: 
  Country: None (occurrence: None)
  Receive Date: 20060228
  Receipt Date: 20060206
  Transmission Date: 20060701
  Serious: Yes (Other)
  Sender: FDA-Public Use
  Company Number: USA041184362

PATIENT
  Sex: Female

DRUGS (2)
  1. HUMATROPE [Suspect]
     Indication: GROWTH HORMONE DEFICIENCY
     Dates: start: 20020101
  2. HUMATROPEN (HUMATROPEN) PEN, REUSABLE [Concomitant]

REACTIONS (2)
  - ANKLE FRACTURE [None]
  - ROAD TRAFFIC ACCIDENT [None]
